FAERS Safety Report 24154436 (Version 2)
Quarter: 2024Q3

REPORT INFORMATION
  Report Type: Report from Study
  Country: US (occurrence: US)
  Receive Date: 20240731
  Receipt Date: 20240822
  Transmission Date: 20241016
  Serious: Yes (Other)
  Sender: ABBVIE
  Company Number: US-ABBVIE-5853912

PATIENT
  Sex: Female

DRUGS (1)
  1. CREON [Suspect]
     Active Substance: PANCRELIPASE AMYLASE\PANCRELIPASE LIPASE\PANCRELIPASE PROTEASE
     Indication: Pancreatic failure
     Route: 048
     Dates: start: 20231214

REACTIONS (16)
  - Central venous catheterisation [Unknown]
  - Alopecia [Unknown]
  - Fatigue [Unknown]
  - Asthenia [Unknown]
  - Muscle spasms [Unknown]
  - Heart rate increased [Unknown]
  - Diarrhoea [Unknown]
  - Diarrhoea [Unknown]
  - Peripheral swelling [Recovered/Resolved]
  - Pancreaticoduodenectomy [Recovering/Resolving]
  - Joint swelling [Recovered/Resolved]
  - Procedural pain [Unknown]
  - Off label use [Unknown]
  - Frequent bowel movements [Unknown]
  - Abdominal pain [Unknown]
  - Flatulence [Unknown]

NARRATIVE: CASE EVENT DATE: 20240101
